FAERS Safety Report 18060517 (Version 1)
Quarter: 2020Q3

REPORT INFORMATION
  Report Type: Spontaneous
  Country: GB (occurrence: GB)
  Receive Date: 20200723
  Receipt Date: 20200723
  Transmission Date: 20201103
  Serious: Yes (Other)
  Sender: FDA-Public Use
  Company Number: GB-TEVA-2020-GB-1803905

PATIENT
  Age: 54 Year
  Sex: Male
  Weight: 58 kg

DRUGS (19)
  1. LANSOPRAZOLE. [Concomitant]
     Active Substance: LANSOPRAZOLE
     Dosage: BEFORE MEALS.:2 DOSAGEFORM
     Dates: start: 20200521
  2. MULTIVITAMIN [Concomitant]
     Active Substance: VITAMINS
     Dosage: 1 DOSAGEFORM
     Dates: start: 20200521
  3. PREDNISOLONE. [Concomitant]
     Active Substance: PREDNISOLONE
     Dosage: DAILY ON MONDAYS, WEDNESDAY AND F...:1 DOSAGEFORM
     Dates: start: 20200522
  4. COLECALCIFEROL [Concomitant]
     Active Substance: CHOLECALCIFEROL
     Dosage: FOR 29 DAYS:4 DOSAGEFORM
     Dates: start: 20200522
  5. ACETYLSALICYLIC ACID [Concomitant]
     Active Substance: ASPIRIN
     Dosage: 1 DOSAGE FORMS DAILY;
     Dates: start: 20200522
  6. GLICLAZIDE [Concomitant]
     Active Substance: GLICLAZIDE
     Dosage: DAILY ON MONDAY, WEDNESDAY...:1 DOSAGEFORM
     Dates: start: 20200522, end: 20200630
  7. LEVETIRACETAM. [Concomitant]
     Active Substance: LEVETIRACETAM
     Dosage: REDUCING DOSE REGIMEN:750MILLIGRAM
     Dates: start: 20200522
  8. QUETIAPINE. [Suspect]
     Active Substance: QUETIAPINE
     Dosage: 25 MILLIGRAM
  9. BUDESONIDE. [Concomitant]
     Active Substance: BUDESONIDE
     Dosage: 2 DOSAGEFORM
     Dates: start: 20200522, end: 20200630
  10. FOLIC ACID. [Concomitant]
     Active Substance: FOLIC ACID
     Dosage: 1 DOSAGEFORM
     Dates: start: 20200521
  11. URSODEOXYCHOLIC ACID [Concomitant]
     Active Substance: URSODIOL
     Dosage: 3 DOSAGE FORMS DAILY; AT NIGHT
     Dates: start: 20200522
  12. MAGNESIUM ASPARTATE [Concomitant]
     Active Substance: MAGNESIUM ASPARTATE
     Dosage: DISSOLVE OR MIX IN WATER...:1 DOSAGEFORM
     Dates: start: 20200630
  13. ADOPORT [Concomitant]
     Active Substance: TACROLIMUS
     Dosage: TAKE AS DIRECTED:12 MILLIGRAM
     Dates: start: 20200522
  14. COTRIMOXAZOLE [Concomitant]
     Active Substance: SULFAMETHOXAZOLE\TRIMETHOPRIM
     Dosage: DAILY ON MONDAY, WEDNESDAY...:1DOSAGEFORM
     Dates: start: 20200522
  15. NOVORAPID [Concomitant]
     Active Substance: INSULIN ASPART
     Dosage: 4 IU (INTERNATIONAL UNIT) DAILY; BEFORE LUNCH
     Route: 058
     Dates: start: 20200630
  16. NOVOMIX [Concomitant]
     Active Substance: INSULIN ASPART
     Dosage: 26 IU (INTERNATIONAL UNIT) DAILY; IN THE MORNING
     Route: 058
     Dates: start: 20200630
  17. FULTIUM?D3 [Concomitant]
     Active Substance: CHOLECALCIFEROL
     Dosage: FOR 30 DAYS:4 DOSAGEFORM
     Dates: start: 20200521, end: 20200620
  18. DIHYDROCODEINE [Concomitant]
     Active Substance: DIHYDROCODEINE
     Dosage: UP TO 4 TIMES A DAY
     Dates: start: 20200522
  19. PARACETAMOL [Concomitant]
     Active Substance: ACETAMINOPHEN
     Indication: PAIN
     Dosage: UP TO 4 TIMES A DAY
     Dates: start: 20200522

REACTIONS (2)
  - Drug intolerance [Unknown]
  - Pancytopenia [Unknown]
